FAERS Safety Report 5931351-7 (Version None)
Quarter: 2008Q4

REPORT INFORMATION
  Report Type: 
  Country: None (occurrence: None)
  Receive Date: 20081027
  Receipt Date: 20081015
  Transmission Date: 20090506
  Serious: Yes (Hospitalization)
  Sender: FDA-Public Use
  Company Number: TR-WATSON-2008-06175

PATIENT
  Age: 26 Year
  Sex: Female

DRUGS (3)
  1. COLCHICINE (WATSON LABORATORIES) [Suspect]
     Indication: SUICIDE ATTEMPT
     Dosage: 27.5 MG, SINGLE
     Route: 048
     Dates: start: 20080306, end: 20080306
  2. FAMOTIDINE [Suspect]
     Indication: SUICIDE ATTEMPT
     Dosage: 600 MG, SINGLE
     Route: 048
     Dates: start: 20080306, end: 20080306
  3. ACETAMINOPHEN [Suspect]
     Indication: SUICIDE ATTEMPT
     Dosage: 5 G, SINGLE
     Route: 048
     Dates: start: 20080306, end: 20080306

REACTIONS (4)
  - INFECTION SUSCEPTIBILITY INCREASED [None]
  - PNEUMONIA [None]
  - POISONING [None]
  - VULVOVAGINAL CANDIDIASIS [None]
